FAERS Safety Report 4748205-4 (Version None)
Quarter: 2005Q3

REPORT INFORMATION
  Report Type: 
  Country: None (occurrence: None)
  Receive Date: 20050818
  Receipt Date: 20050603
  Transmission Date: 20060218
  Serious: Yes (Death)
  Sender: FDA-Public Use
  Company Number: BR-ABBOTT-05P-020-0302240-01

PATIENT
  Sex: Male
  Weight: 55.3 kg

DRUGS (17)
  1. RITONAVIR SOFT GELATIN CAPSULES [Suspect]
     Indication: HIV INFECTION
     Route: 048
     Dates: start: 20050324, end: 20050520
  2. TMC114 [Concomitant]
     Indication: HIV INFECTION
     Route: 048
     Dates: start: 20050324, end: 20050520
  3. TENOFOVIR [Concomitant]
     Indication: HIV INFECTION
     Route: 048
     Dates: start: 20040903, end: 20050622
  4. DIDANOSINE [Concomitant]
     Indication: HIV INFECTION
     Route: 048
     Dates: start: 20040903, end: 20050622
  5. LAMIVUDINE [Concomitant]
     Indication: HIV INFECTION
     Route: 048
     Dates: start: 20020801, end: 20050622
  6. ENFUVERTIDE [Concomitant]
     Indication: HIV INFECTION
     Route: 058
     Dates: start: 20050503, end: 20050622
  7. COTRIMAZOLE [Concomitant]
     Indication: INFECTION PROPHYLAXIS
     Route: 048
     Dates: end: 20050622
  8. FLUCONAZOLE [Concomitant]
     Indication: PROPHYLAXIS
     Route: 048
     Dates: end: 20050622
  9. AMMONIUM LACTATE [Concomitant]
     Indication: DRY SKIN
     Route: 061
     Dates: start: 20040820, end: 20050622
  10. DIPIRONA [Concomitant]
     Indication: PAIN IN EXTREMITY
     Route: 048
     Dates: start: 20040929, end: 20050622
  11. DIAZEPAM [Concomitant]
     Indication: INSOMNIA
     Route: 048
     Dates: start: 20040406, end: 20050622
  12. GANCYCLOVIR [Concomitant]
     Indication: CYTOMEGALOVIRUS CHORIORETINITIS
     Route: 042
     Dates: start: 20050208, end: 20050414
  13. GANCYCLOVIR [Concomitant]
     Route: 042
     Dates: start: 20050415, end: 20050622
  14. CHLORPROMAZINE HCL [Concomitant]
     Indication: HICCUPS
     Route: 048
     Dates: start: 20050413, end: 20050622
  15. CHLORPROMAZINE HCL [Concomitant]
  16. FLUOXETINE [Concomitant]
     Indication: DEPRESSION
     Route: 048
     Dates: start: 20050428, end: 20050622
  17. AZITHROMYCIN [Concomitant]
     Indication: PROPHYLAXIS
     Route: 048
     Dates: start: 20050502, end: 20050622

REACTIONS (10)
  - ANURIA [None]
  - CACHEXIA [None]
  - CANDIDIASIS [None]
  - ESCHERICHIA BACTERAEMIA [None]
  - GIARDIASIS [None]
  - KAPOSI'S SARCOMA [None]
  - MULTI-ORGAN FAILURE [None]
  - PANCREATITIS [None]
  - TACHYCARDIA [None]
  - TACHYPNOEA [None]
